FAERS Safety Report 26191032 (Version 1)
Quarter: 2025Q4

REPORT INFORMATION
  Report Type: Spontaneous
  Country: CA (occurrence: CA)
  Receive Date: 20251223
  Receipt Date: 20251223
  Transmission Date: 20260118
  Serious: Yes (Hospitalization, Disabling)
  Sender: ACCORD
  Company Number: None

PATIENT
  Age: 74 Year
  Sex: Female
  Weight: 48 kg

DRUGS (16)
  1. METHOTREXATE [Suspect]
     Active Substance: METHOTREXATE
     Indication: Morphoea
     Dosage: SOLUTION, 1 EVERY 1 WEEKS
     Route: 058
  2. PREDNISONE [Suspect]
     Active Substance: PREDNISONE
     Indication: Morphoea
     Dosage: STRENGTH: 5 MG, 1 EVERY 1 DAYS
     Route: 048
  3. ALENDRONATE [Concomitant]
     Active Substance: ALENDRONATE SODIUM
  4. ATENOLOL [Concomitant]
     Active Substance: ATENOLOL
  5. CALCIUM CARBONATE\VITAMIN D [Concomitant]
     Active Substance: CALCIUM CARBONATE\VITAMIN D
  6. ELIQUIS [Concomitant]
     Active Substance: APIXABAN
  7. FOLIC ACID [Concomitant]
     Active Substance: FOLIC ACID
  8. FUROSEMIDE [Concomitant]
     Active Substance: FUROSEMIDE
  9. FUSIDIC ACID [Concomitant]
     Active Substance: FUSIDIC ACID
  10. IRON SUCROSE [Concomitant]
     Active Substance: IRON SUCROSE
     Dosage: INTRAVENOUS SOLUTION
  11. METFORMIN [Concomitant]
     Active Substance: METFORMIN HYDROCHLORIDE
  12. METHADONE [Concomitant]
     Active Substance: METHADONE HYDROCHLORIDE
  13. PANTOPRAZOLE [Concomitant]
     Active Substance: PANTOPRAZOLE
  14. PERINDOPRIL ERBUMINE [Concomitant]
     Active Substance: PERINDOPRIL ERBUMINE
  15. SPIRONOLACTONE [Concomitant]
     Active Substance: SPIRONOLACTONE
  16. VITAMIN B12 [Concomitant]
     Active Substance: CYANOCOBALAMIN

REACTIONS (8)
  - Confusional state [Recovered/Resolved]
  - Abulia [Recovered/Resolved]
  - Immunosuppression [Recovered/Resolved]
  - Postural tremor [Recovered/Resolved]
  - Mental disorder [Recovered/Resolved]
  - JC virus infection [Recovered/Resolved]
  - Photopheresis [Recovered/Resolved]
  - Progressive multifocal leukoencephalopathy [Recovered/Resolved]
